FAERS Safety Report 4522578-X (Version None)
Quarter: 2004Q4

REPORT INFORMATION
  Report Type: 
  Country: None (occurrence: None)
  Receive Date: 20041207
  Receipt Date: 20041123
  Transmission Date: 20050328
  Serious: Yes (Death, Other)
  Sender: FDA-Public Use
  Company Number: FR_041105296

PATIENT
  Age: 30 Year
  Sex: Male
  Weight: 92 kg

DRUGS (3)
  1. ZYPREXA [Suspect]
     Indication: SCHIZOPHRENIA, PARANOID TYPE
     Dosage: 20 MG/1 DAY
     Dates: start: 20030501
  2. LEXOMIL (BROMAZEPAM) [Concomitant]
  3. XANAX (ALPRAZOLAM DUM) [Concomitant]

REACTIONS (3)
  - HYPERCHOLESTEROLAEMIA [None]
  - LIVER FUNCTION TEST ABNORMAL [None]
  - WEIGHT INCREASED [None]
